FAERS Safety Report 14333587 (Version 10)
Quarter: 2023Q1

REPORT INFORMATION
  Report Type: Report from Study
  Country: JP (occurrence: JP)
  Receive Date: 20171228
  Receipt Date: 20230324
  Transmission Date: 20230418
  Serious: Yes (Hospitalization, Other)
  Sender: FDA-Public Use
  Company Number: JP-ABBVIE-17K-087-2186265-00

PATIENT
  Age: 71 Year
  Sex: Female

DRUGS (11)
  1. CARBIDOPA\LEVODOPA [Suspect]
     Active Substance: CARBIDOPA\LEVODOPA
     Indication: Product used for unknown indication
     Dosage: MD: 11.8 ML,CD: 5 ML/HR ? 16 HRS, LAST ADMIN DATE-2017
     Route: 050
     Dates: start: 20170907
  2. CARBIDOPA\LEVODOPA [Suspect]
     Active Substance: CARBIDOPA\LEVODOPA
     Indication: Parkinson^s disease
     Dosage: TRAIL DOSES
     Route: 050
     Dates: start: 201710, end: 201710
  3. CARBIDOPA\LEVODOPA [Suspect]
     Active Substance: CARBIDOPA\LEVODOPA
     Dosage: EXTRA DOSE ADMINISTERED TWICE ON SAME DAY
     Route: 050
     Dates: start: 20171130, end: 20171218
  4. CARBIDOPA\LEVODOPA [Suspect]
     Active Substance: CARBIDOPA\LEVODOPA
     Dosage: EXTRA DOSE ADMINISTERED AS PATIENT COULD NOT MOVE, FIRST ADMIN DATE-2017
     Route: 050
     Dates: end: 201712
  5. CARBIDOPA\LEVODOPA [Suspect]
     Active Substance: CARBIDOPA\LEVODOPA
     Dosage: MD: 11.8 ML, CD: 5 ML/HR A- 16 HRS, ED: 1 ML/UNITA- 0
     Route: 050
     Dates: start: 20171221
  6. Carbidopa hydrate and levodopa [Concomitant]
     Indication: Parkinson^s disease
     Dosage: TIME INTERVAL: 0.16666667 DAYS: 600 MILLIGRAM
     Route: 048
     Dates: start: 20171218, end: 20171221
  7. DROXIDOPA [Concomitant]
     Active Substance: DROXIDOPA
     Indication: Product used for unknown indication
     Route: 048
  8. MIDODRINE HYDROCHLORIDE [Concomitant]
     Active Substance: MIDODRINE HYDROCHLORIDE
     Indication: Product used for unknown indication
     Route: 048
  9. HERBALS [Concomitant]
     Active Substance: HERBALS
     Indication: Product used for unknown indication
     Route: 048
  10. QUETIAPINE FUMARATE [Concomitant]
     Active Substance: QUETIAPINE FUMARATE
     Indication: Product used for unknown indication
     Route: 048
  11. CARBIDOPA\LEVODOPA [Concomitant]
     Active Substance: CARBIDOPA\LEVODOPA
     Indication: Parkinson^s disease
     Route: 048
     Dates: start: 20171218, end: 20171221

REACTIONS (8)
  - Deep brain stimulation [Unknown]
  - On and off phenomenon [Recovered/Resolved]
  - Bradykinesia [Recovered/Resolved]
  - Therapeutic product effect incomplete [Unknown]
  - Abdominal pain [Unknown]
  - Dyskinesia [Recovered/Resolved]
  - Bradykinesia [Recovered/Resolved]
  - Dyskinesia [Unknown]

NARRATIVE: CASE EVENT DATE: 20171130
